FAERS Safety Report 5827695-X (Version None)
Quarter: 2008Q3

REPORT INFORMATION
  Report Type: 
  Country: None (occurrence: None)
  Receive Date: 20080728
  Receipt Date: 20080710
  Transmission Date: 20090109
  Serious: Yes (Death, Life-Threatening)
  Sender: FDA-Public Use
  Company Number: 2008US001044

PATIENT
  Age: 60 Year
  Sex: Male
  Weight: 52 kg

DRUGS (19)
  1. AMBISOME [Suspect]
     Indication: BRAIN ABSCESS
     Dosage: 150 MG, UID/QD, APPROX 28.7MG/KG
     Dates: start: 20070809, end: 20070821
  2. MEROPENEM TRIHYDRATE(MEROPENEM TRIHYDRATE) [Suspect]
     Indication: LYMPHOMA
     Dosage: 1.5 G, UID/QD, IV NOS
     Route: 042
     Dates: start: 20070813, end: 20070821
  3. VANCOMYCIN HYDROCHLORIDE [Suspect]
     Indication: LYMPHOMA
     Dosage: 1 G, UID/QD, IV NOS
     Route: 042
     Dates: start: 20070813, end: 20070821
  4. ANCOTIL (FLUCYTOSINE) [Concomitant]
  5. FAMOTIDINE [Concomitant]
  6. ENTERONON R (STREPTOCOCCUS FAECALIS, LACTOBACILLUS ACIDOPHILUS, STREPT [Concomitant]
  7. TEGRETOL [Concomitant]
  8. PROMAC (POLAPREZINC) [Concomitant]
  9. LOXONIN (LOXOPROFEN SODIUM) [Concomitant]
  10. ISOTONIC SODIUM CHLORIDE SOLUTION KIT (SODIUM CHLORIDE) [Concomitant]
  11. FINIBAX [Concomitant]
  12. AMIKACIN SULFATE [Concomitant]
  13. NEOPAREN [Concomitant]
  14. SEISHOKU (SODIUM CHLORIDE) [Concomitant]
  15. METILON (METAMIZOLE SODIUM) [Concomitant]
  16. VENOGLOBULIN [Concomitant]
  17. PREDOPA (DOPAMINE HYDROCHLORIDE) [Concomitant]
  18. NEO-MINOPHAGEN C (GLYCYRRHIZIC ACID, AMMONIUM SALT) [Concomitant]
  19. CIPROFLOXACIN HCL [Concomitant]

REACTIONS (5)
  - BRAIN CANCER METASTATIC [None]
  - CENTRAL NERVOUS SYSTEM LYMPHOMA [None]
  - DYSPHAGIA [None]
  - HYPOTENSION [None]
  - LIVER DISORDER [None]
